FAERS Safety Report 20926489 (Version 1)
Quarter: 2022Q2

REPORT INFORMATION
  Report Type: Spontaneous
  Country: US (occurrence: US)
  Receive Date: 20220607
  Receipt Date: 20220607
  Transmission Date: 20220721
  Serious: No
  Sender: FDA-Public Use
  Company Number: US-PERRIGO-21US012274

PATIENT
  Age: 69 Year
  Sex: Male
  Weight: 86.168 kg

DRUGS (8)
  1. MINOXIDIL [Suspect]
     Active Substance: MINOXIDIL
     Indication: Off label use
     Dosage: MORE THAN 0.5 CAPFUL, BID
     Route: 061
     Dates: start: 20210722, end: 20210830
  2. LATANOPROST [Concomitant]
     Active Substance: LATANOPROST
     Indication: Glaucoma
     Dosage: UNK
     Route: 065
     Dates: start: 2011
  3. CYCLOSPORINE [Concomitant]
     Active Substance: CYCLOSPORINE
     Indication: Dry eye
     Dosage: UNK
     Route: 065
     Dates: start: 2011
  4. PROPANOLOL                         /00030001/ [Concomitant]
     Indication: Tremor
     Dosage: UNK
     Route: 065
  5. ATORVASTATIN [Concomitant]
     Active Substance: ATORVASTATIN
     Indication: Blood cholesterol increased
     Dosage: UNK
     Route: 065
     Dates: start: 2016
  6. DUTASTERIDE [Concomitant]
     Active Substance: DUTASTERIDE
     Indication: Alopecia
     Dosage: UNK
     Route: 065
     Dates: start: 202104
  7. IPRATROPIUM [Concomitant]
     Active Substance: IPRATROPIUM
     Indication: Upper-airway cough syndrome
     Dosage: UNK
     Route: 065
     Dates: start: 2018
  8. IPRATROPIUM [Concomitant]
     Active Substance: IPRATROPIUM
     Indication: Rhinorrhoea

REACTIONS (2)
  - Condition aggravated [Not Recovered/Not Resolved]
  - Off label use [Recovered/Resolved]

NARRATIVE: CASE EVENT DATE: 20210722
